FAERS Safety Report 6851166-5 (Version None)
Quarter: 2010Q3

REPORT INFORMATION
  Report Type: 
  Country: None (occurrence: None)
  Receive Date: 20100716
  Receipt Date: 20071219
  Transmission Date: 20110219
  Serious: No
  Sender: FDA-Public Use
  Company Number: US-PFIZER INC-2007090798

PATIENT
  Sex: Female
  Weight: 99.1 kg

DRUGS (2)
  1. CHANTIX [Suspect]
     Indication: SMOKING CESSATION THERAPY
     Dates: start: 20070801, end: 20070801
  2. LABETALOL HCL [Concomitant]
     Indication: HYPERTENSION

REACTIONS (6)
  - BLOOD GLUCOSE INCREASED [None]
  - CRYING [None]
  - DEPRESSION [None]
  - FATIGUE [None]
  - INSOMNIA [None]
  - MOOD ALTERED [None]
